FAERS Safety Report 9757543 (Version 2)
Quarter: 2013Q4

REPORT INFORMATION
  Report Type: Report from Study
  Country: CA (occurrence: CA)
  Receive Date: 20131216
  Receipt Date: 20131216
  Transmission Date: 20140711
  Serious: Yes (Other)
  Sender: FDA-Public Use
  Company Number: CA-ROCHE-1238286

PATIENT
  Age: 28 Year
  Sex: Female
  Weight: 57.8 kg

DRUGS (11)
  1. AVASTIN [Suspect]
     Indication: OVARIAN CANCER METASTATIC
     Route: 042
     Dates: start: 20130527
  2. SOLU-MEDROL [Concomitant]
     Route: 042
     Dates: start: 20130527
  3. SOLU-MEDROL [Concomitant]
     Route: 042
     Dates: start: 20131022
  4. TYLENOL [Concomitant]
     Route: 048
     Dates: start: 20130527
  5. BENADRYL (CANADA) [Concomitant]
     Route: 048
     Dates: start: 20130527, end: 20130909
  6. PROCHLOR [Concomitant]
     Route: 065
     Dates: start: 2012
  7. ESTROGEL [Concomitant]
     Dosage: DOES NOT TAKE
     Route: 065
     Dates: start: 2012
  8. NYSTATIN [Concomitant]
     Route: 065
     Dates: start: 2012
  9. DEXAMETHASONE [Concomitant]
     Route: 065
     Dates: start: 2012
  10. EMEND [Concomitant]
     Route: 065
     Dates: start: 2012
  11. ONDANSETRON [Concomitant]
     Route: 065
     Dates: start: 2012

REACTIONS (17)
  - Injection site extravasation [Unknown]
  - Lymphocyte count decreased [Unknown]
  - Blood test abnormal [Unknown]
  - Emotional distress [Not Recovered/Not Resolved]
  - Urinary tract infection [Recovered/Resolved]
  - Fatigue [Not Recovered/Not Resolved]
  - Platelet count increased [Unknown]
  - Protein urine [Unknown]
  - Neutrophil count increased [Unknown]
  - Lymphocyte count decreased [Unknown]
  - Neutrophil count increased [Unknown]
  - Eosinophil count increased [Unknown]
  - Blood magnesium decreased [Unknown]
  - Red cell distribution width increased [Unknown]
  - Mean platelet volume decreased [Unknown]
  - Lymphocyte count decreased [Unknown]
  - Blood magnesium decreased [Unknown]
